FAERS Safety Report 17689251 (Version 1)
Quarter: 2020Q2

REPORT INFORMATION
  Report Type: Spontaneous
  Country: US (occurrence: US)
  Receive Date: 20200421
  Receipt Date: 20200421
  Transmission Date: 20200714
  Serious: No
  Sender: FDA-Public Use
  Company Number: US-JNJFOC-20200402165

PATIENT
  Age: 61 Year
  Sex: Female
  Weight: 87.17 kg

DRUGS (2)
  1. ZYRTEC-D [Suspect]
     Active Substance: CETIRIZINE HYDROCHLORIDE\PSEUDOEPHEDRINE HYDROCHLORIDE
     Indication: SEASONAL ALLERGY
     Dosage: IT WAS JUST THE ONE TABLET. IT WAS JUST THE ONE TIME I USED IT.
     Route: 048
     Dates: start: 20200328, end: 20200328
  2. ZYRTEC-D [Suspect]
     Active Substance: CETIRIZINE HYDROCHLORIDE\PSEUDOEPHEDRINE HYDROCHLORIDE
     Indication: NASAL CONGESTION

REACTIONS (4)
  - Pruritus [Recovering/Resolving]
  - Headache [Recovered/Resolved]
  - Eye irritation [Recovering/Resolving]
  - Eyelid irritation [Recovering/Resolving]

NARRATIVE: CASE EVENT DATE: 20200328
